FAERS Safety Report 5765519-X (Version None)
Quarter: 2008Q2

REPORT INFORMATION
  Report Type: 
  Country: None (occurrence: None)
  Receive Date: 20080611
  Receipt Date: 20080606
  Transmission Date: 20081010
  Serious: Yes (Hospitalization)
  Sender: FDA-Public Use
  Company Number: FR-MERCK-0806FRA00011

PATIENT
  Age: 74 Year
  Sex: Female

DRUGS (14)
  1. FOSAMAX [Suspect]
     Indication: OSTEOPOROSIS
     Route: 048
  2. ALLOPURINOL [Concomitant]
     Indication: HYPERURICAEMIA
     Route: 048
  3. AVOCADO OIL AND SOYBEAN OIL [Concomitant]
     Route: 048
     Dates: end: 20070709
  4. CLOPIDOGREL BISULFATE [Suspect]
     Indication: THROMBOSIS PROPHYLAXIS
     Route: 048
  5. DICLOFENAC [Suspect]
     Indication: OSTEOARTHRITIS
     Route: 048
     Dates: start: 20070701, end: 20070709
  6. ASPIRIN [Suspect]
     Indication: THROMBOSIS PROPHYLAXIS
     Route: 048
  7. ACETAMINOPHEN [Concomitant]
     Indication: OSTEOARTHRITIS
     Route: 048
  8. ESOMEPRAZOLE MAGNESIUM [Concomitant]
     Indication: PROPHYLAXIS AGAINST GASTROINTESTINAL ULCER
     Route: 048
  9. GLYBURIDE [Concomitant]
     Indication: TYPE 2 DIABETES MELLITUS
     Route: 048
  10. METFORMIN [Concomitant]
     Indication: TYPE 2 DIABETES MELLITUS
     Route: 048
  11. ZOCOR [Concomitant]
     Indication: HYPERCHOLESTEROLAEMIA
     Route: 048
  12. HYDROCHLOROTHIAZIDE AND IRBESARTAN [Concomitant]
     Indication: HYPERTENSION
     Route: 048
  13. AMLODIPINE BESYLATE [Concomitant]
     Indication: HYPERTENSION
     Route: 048
  14. AMLODIPINE BESYLATE [Concomitant]
     Indication: CORONARY ARTERY DISEASE
     Route: 048

REACTIONS (3)
  - ANGINA PECTORIS [None]
  - DRUG INTERACTION [None]
  - UPPER GASTROINTESTINAL HAEMORRHAGE [None]
